FAERS Safety Report 11142344 (Version 1)
Quarter: 2015Q2

REPORT INFORMATION
  Report Type: Spontaneous
  Country: FR (occurrence: FR)
  Receive Date: 20150527
  Receipt Date: 20150527
  Transmission Date: 20150821
  Serious: Yes (Hospitalization, Other)
  Sender: FDA-Public Use
  Company Number: FR-BAXTER-2015BAX026655

PATIENT
  Age: 58 Year
  Sex: Male

DRUGS (13)
  1. ENDOXAN 1000 MG, POUDRE POUR SOLUTION INJECTABLE [Suspect]
     Active Substance: CYCLOPHOSPHAMIDE
     Dosage: 3RD COURSE
     Route: 042
     Dates: start: 20150202, end: 20150202
  2. VISMED [Concomitant]
     Indication: DRUG THERAPY
     Route: 065
  3. ENDOXAN 1000 MG, POUDRE POUR SOLUTION INJECTABLE [Suspect]
     Active Substance: CYCLOPHOSPHAMIDE
     Dosage: 6TH COURSE
     Route: 042
     Dates: start: 20150408, end: 20150408
  4. CALCIDOSE VITAMIN D3 [Concomitant]
     Active Substance: CALCIUM CARBONATE\CHOLECALCIFEROL
     Indication: DRUG THERAPY
     Route: 065
  5. ZELITREX [Concomitant]
     Active Substance: VALACYCLOVIR HYDROCHLORIDE
     Indication: DRUG THERAPY
     Route: 065
  6. ENDOXAN 1000 MG, POUDRE POUR SOLUTION INJECTABLE [Suspect]
     Active Substance: CYCLOPHOSPHAMIDE
     Indication: OFF LABEL USE
     Dosage: 2ND COURSE
     Route: 042
     Dates: start: 20150113, end: 20150113
  7. ENDOXAN 1000 MG, POUDRE POUR SOLUTION INJECTABLE [Suspect]
     Active Substance: CYCLOPHOSPHAMIDE
     Dosage: 4TH COURSE
     Route: 042
     Dates: start: 20150224, end: 20150224
  8. CORTANCYL [Concomitant]
     Active Substance: PREDNISONE
     Indication: DRUG THERAPY
     Route: 065
  9. VITAMIN A POMMADE [Concomitant]
     Indication: DRUG THERAPY
     Dosage: 1 APPLICATION
     Route: 065
  10. ENDOXAN 1000 MG, POUDRE POUR SOLUTION INJECTABLE [Suspect]
     Active Substance: CYCLOPHOSPHAMIDE
     Dosage: 5TH COURSE
     Route: 042
     Dates: start: 20150318, end: 20150318
  11. ENDOXAN 1000 MG, POUDRE POUR SOLUTION INJECTABLE [Suspect]
     Active Substance: CYCLOPHOSPHAMIDE
     Indication: ANTISYNTHETASE SYNDROME
     Dosage: 1ST COURSE
     Route: 042
     Dates: start: 20141223, end: 20141223
  12. BACTRIM [Concomitant]
     Active Substance: SULFAMETHOXAZOLE\TRIMETHOPRIM
     Indication: DRUG THERAPY
     Dosage: MONDAY/WEDNESDAY/FRIDAY
     Route: 065
  13. SPECIAFOLDINE [Concomitant]
     Active Substance: FOLIC ACID
     Indication: DRUG THERAPY
     Dosage: TUES/THURS/SAT/SUN
     Route: 065

REACTIONS (5)
  - Pleural effusion [Unknown]
  - Ejection fraction decreased [Recovering/Resolving]
  - Renal failure [Unknown]
  - Hypertension [Unknown]
  - Myocardial oedema [Recovering/Resolving]

NARRATIVE: CASE EVENT DATE: 20150408
